FAERS Safety Report 6005900-7 (Version None)
Quarter: 2008Q4

REPORT INFORMATION
  Report Type: 
  Country: None (occurrence: None)
  Receive Date: 20081216
  Receipt Date: 20081216
  Transmission Date: 20090506
  Serious: Yes (Hospitalization)
  Sender: FDA-Public Use
  Company Number: None

PATIENT
  Sex: Male
  Weight: 81.4 kg

DRUGS (2)
  1. DACARBAZINE [Suspect]
     Dosage: 1970MG, IV, Q21DAYS
     Route: 042
     Dates: start: 20080611, end: 20081027
  2. DASATINIB 70MG BID BRISTOL-MYERS SQUIBB [Suspect]
     Dosage: 70MG, PO, BID
     Route: 048
     Dates: start: 20080612, end: 20081114

REACTIONS (3)
  - ABDOMINAL PAIN [None]
  - DISEASE PROGRESSION [None]
  - FATIGUE [None]
